FAERS Safety Report 5728015-1 (Version None)
Quarter: 2008Q2

REPORT INFORMATION
  Report Type: 
  Country: None (occurrence: None)
  Receive Date: 20080505
  Receipt Date: 20080430
  Transmission Date: 20081010
  Serious: Yes (Hospitalization)
  Sender: FDA-Public Use
  Company Number: US-BOEHRINGER INGELHEIM GMBH, GERMANY-2008-BP-03659RO

PATIENT
  Sex: Female

DRUGS (2)
  1. LEVORPHANOL TARTRATE [Suspect]
     Indication: PAIN
  2. LEVORPHANOL TARTRATE [Suspect]
     Indication: COMPLEX REGIONAL PAIN SYNDROME

REACTIONS (3)
  - AGITATION [None]
  - DRUG INEFFECTIVE [None]
  - PHARMACEUTICAL PRODUCT COMPLAINT [None]
